FAERS Safety Report 14376824 (Version 1)
Quarter: 2018Q1

REPORT INFORMATION
  Report Type: Report from Study
  Country: CO (occurrence: CO)
  Receive Date: 20180111
  Receipt Date: 20180111
  Transmission Date: 20180509
  Serious: Yes (Hospitalization)
  Sender: FDA-Public Use
  Company Number: CO-JNJFOC-20171012244

PATIENT
  Age: 66 Year
  Sex: Male
  Weight: 70 kg

DRUGS (2)
  1. PREDNISOLONE. [Concomitant]
     Active Substance: PREDNISOLONE
     Indication: PROSTATE CANCER
     Route: 065
     Dates: start: 20170829
  2. ZYTIGA [Suspect]
     Active Substance: ABIRATERONE ACETATE
     Indication: PROSTATE CANCER
     Route: 048
     Dates: start: 20170829

REACTIONS (5)
  - Abdominal pain upper [Unknown]
  - Penile oedema [Unknown]
  - Cystitis noninfective [Not Recovered/Not Resolved]
  - Oedema peripheral [Recovering/Resolving]
  - Faeces soft [Unknown]

NARRATIVE: CASE EVENT DATE: 20171004
